FAERS Safety Report 13376718 (Version 1)
Quarter: 2017Q1

REPORT INFORMATION
  Report Type: Spontaneous
  Country: US (occurrence: US)
  Receive Date: 20170328
  Receipt Date: 20170328
  Transmission Date: 20170429
  Serious: Yes (Hospitalization)
  Sender: FDA-Public Use
  Company Number: US-BRAINTREE LABORATORIES-170155-1

PATIENT
  Age: 68 Year
  Sex: Female
  Weight: 57.15 kg

DRUGS (1)
  1. SUPREP BOWEL PREP [Suspect]
     Active Substance: MAGNESIUM SULFATE\POTASSIUM SULFATE\SODIUM SULFATE
     Indication: COLONOSCOPY
     Dosage: 1 X 6 OZ. BOTTLE
     Route: 048
     Dates: start: 20170205, end: 20170205

REACTIONS (6)
  - Dizziness [None]
  - Vomiting [None]
  - Blood pressure increased [None]
  - Hyponatraemia [None]
  - Nausea [None]
  - Abdominal discomfort [None]

NARRATIVE: CASE EVENT DATE: 20170205
